FAERS Safety Report 7220697-0 (Version None)
Quarter: 2011Q1

REPORT INFORMATION
  Report Type: 
  Country: None (occurrence: None)
  Receive Date: 20110111
  Receipt Date: 20110104
  Transmission Date: 20110831
  Serious: Yes (Other)
  Sender: FDA-Public Use
  Company Number: US-ELI_LILLY_AND_COMPANY-US201101001219

PATIENT
  Sex: Female

DRUGS (2)
  1. HUMALOG [Concomitant]
     Indication: DIABETES MELLITUS
  2. HUMALOG [Suspect]
     Route: 058

REACTIONS (2)
  - MEMORY IMPAIRMENT [None]
  - COMA [None]
